FAERS Safety Report 9292794 (Version 1)
Quarter: 2013Q2

REPORT INFORMATION
  Report Type: Spontaneous
  Country: US (occurrence: US)
  Receive Date: 20130516
  Receipt Date: 20130516
  Transmission Date: 20140414
  Serious: Yes (Death, Other)
  Sender: FDA-Public Use
  Company Number: US-BAXTER-2013BAX015988

PATIENT
  Sex: Female

DRUGS (1)
  1. DIANEAL LOW CALCIUM [Suspect]
     Indication: PERITONEAL DIALYSIS
     Route: 033
     Dates: end: 20130226

REACTIONS (5)
  - Therapy cessation [Fatal]
  - Renal failure [Fatal]
  - Neuropathy peripheral [Unknown]
  - Ultrafiltration failure [Unknown]
  - Impaired self-care [Unknown]
